FAERS Safety Report 7478189-X (Version None)
Quarter: 2011Q2

REPORT INFORMATION
  Report Type: 
  Country: None (occurrence: None)
  Receive Date: 20110513
  Receipt Date: 20110505
  Transmission Date: 20111010
  Serious: Yes (Hospitalization, Other)
  Sender: FDA-Public Use
  Company Number: PHHY2011CA38868

PATIENT

DRUGS (1)
  1. TASIGNA [Suspect]
     Dosage: UNK

REACTIONS (1)
  - DYSPHAGIA [None]
